FAERS Safety Report 8593537-5 (Version None)
Quarter: 2012Q3

REPORT INFORMATION
  Report Type: 
  Country: None (occurrence: None)
  Receive Date: 20120814
  Receipt Date: 20120809
  Transmission Date: 20120928
  Serious: Yes (Other)
  Sender: FDA-Public Use
  Company Number: JP-VERTEX PHARMACEUTICALS INC.-AE-2012-009546

PATIENT
  Age: 53 Year
  Sex: Male

DRUGS (6)
  1. REBETOL [Concomitant]
     Route: 048
     Dates: start: 20120620
  2. TELAVIC [Suspect]
     Route: 048
     Dates: start: 20120711, end: 20120712
  3. REBETOL [Concomitant]
     Indication: HEPATITIS C
     Route: 048
     Dates: start: 20120509, end: 20120619
  4. TELAVIC [Suspect]
     Indication: HEPATITIS C
     Route: 048
     Dates: start: 20120509, end: 20120619
  5. TELAVIC [Suspect]
     Route: 048
     Dates: start: 20120620, end: 20120706
  6. PEGINTERFERON ALFA-2B [Concomitant]
     Indication: HEPATITIS C
     Route: 058
     Dates: start: 20120509

REACTIONS (2)
  - ULCER HAEMORRHAGE [None]
  - ILEAL ULCER [None]
